FAERS Safety Report 11957118 (Version 2)
Quarter: 2016Q2

REPORT INFORMATION
  Report Type: Spontaneous
  Country: LB (occurrence: LB)
  Receive Date: 20160126
  Receipt Date: 20160531
  Transmission Date: 20160815
  Serious: Yes (Hospitalization)
  Sender: FDA-Public Use
  Company Number: LB-ABBVIE-16P-093-1544183-00

PATIENT
  Age: 60 Year
  Sex: Male

DRUGS (3)
  1. VIEKIRAX [Suspect]
     Active Substance: OMBITASVIR\PARITAPREVIR\RITONAVIR
     Indication: CHRONIC HEPATITIS C
     Route: 048
  2. RIBAVIRIN. [Concomitant]
     Active Substance: RIBAVIRIN
     Indication: PRODUCT USED FOR UNKNOWN INDICATION
     Route: 048
  3. VIEKIRAX [Suspect]
     Active Substance: OMBITASVIR\PARITAPREVIR\RITONAVIR
     Indication: HEPATIC FIBROSIS

REACTIONS (8)
  - Face oedema [Unknown]
  - Proteinuria [Unknown]
  - Nephrotic syndrome [Unknown]
  - Blood creatinine increased [Not Recovered/Not Resolved]
  - Chronic kidney disease [Not Recovered/Not Resolved]
  - Oedema peripheral [Unknown]
  - Hypoalbuminaemia [Unknown]
  - Albumin urine present [Unknown]

NARRATIVE: CASE EVENT DATE: 20160115
